FAERS Safety Report 9476589 (Version 1)
Quarter: 2013Q3

REPORT INFORMATION
  Report Type: Spontaneous
  Country: US (occurrence: None)
  Receive Date: 20130823
  Receipt Date: 20130823
  Transmission Date: 20140515
  Serious: Yes (Other)
  Sender: FDA-Public Use
  Company Number: None

PATIENT
  Age: 36 Year
  Sex: Female
  Weight: 105.69 kg

DRUGS (1)
  1. NOVOLIN [Suspect]
     Indication: WEIGHT INCREASED
     Dosage: 35 UNITS TWICE DAILY GIVEN INTO/UNDER THE SKIN
     Dates: start: 20130722, end: 20130822

REACTIONS (1)
  - Abnormal weight gain [None]
